FAERS Safety Report 4676346-9 (Version None)
Quarter: 2005Q2

REPORT INFORMATION
  Report Type: 
  Country: None (occurrence: None)
  Receive Date: 20050527
  Receipt Date: 20050516
  Transmission Date: 20051028
  Serious: Yes (Hospitalization)
  Sender: FDA-Public Use
  Company Number: IT-AMGEN-UK133640

PATIENT
  Sex: Male

DRUGS (6)
  1. KINERET [Suspect]
     Indication: CONNECTIVE TISSUE DISORDER
     Route: 058
     Dates: start: 20050427, end: 20050509
  2. CALCIUM GLUCONATE [Concomitant]
     Route: 065
  3. VITAMIN D [Concomitant]
     Route: 065
  4. RANITIDINE [Concomitant]
     Route: 065
     Dates: start: 20050426, end: 20050509
  5. OXATOMIDE [Concomitant]
     Route: 065
     Dates: start: 20050425, end: 20050509
  6. IBUPROFEN [Concomitant]
     Route: 048
     Dates: start: 20050425, end: 20050509

REACTIONS (1)
  - HISTIOCYTOSIS HAEMATOPHAGIC [None]
